FAERS Safety Report 18706946 (Version 1)
Quarter: 2021Q1

REPORT INFORMATION
  Report Type: Spontaneous
  Country: US (occurrence: US)
  Receive Date: 20210106
  Receipt Date: 20210106
  Transmission Date: 20210419
  Serious: Yes (Other)
  Sender: FDA-Public Use
  Company Number: US-PFIZER INC-2021004571

PATIENT

DRUGS (2)
  1. NEURONTIN [Suspect]
     Active Substance: GABAPENTIN
     Dosage: UNK
  2. GABAPENTIN. [Suspect]
     Active Substance: GABAPENTIN
     Dosage: UNK

REACTIONS (7)
  - Attention deficit hyperactivity disorder [Unknown]
  - Bipolar disorder [Unknown]
  - Band sensation [Unknown]
  - Pulmonary embolism [Unknown]
  - Road traffic accident [Unknown]
  - Mania [Unknown]
  - Headache [Unknown]
